FAERS Safety Report 4847538-0 (Version None)
Quarter: 2005Q4

REPORT INFORMATION
  Report Type: 
  Country: None (occurrence: None)
  Receive Date: 20051205
  Receipt Date: 20051123
  Transmission Date: 20060501
  Serious: Yes (Hospitalization)
  Sender: FDA-Public Use
  Company Number: HQWYE703523NOV05

PATIENT
  Age: 74 Year
  Sex: Male

DRUGS (5)
  1. INDERAL [Suspect]
     Indication: HYPERTENSION
     Dosage: 30 MG 1X PER 1 DAY
     Route: 048
     Dates: start: 20051019, end: 20050101
  2. NITRENDIPINE              (NITRENDIPINE) [Concomitant]
  3. ENALAPRIL MALEATE [Concomitant]
  4. GRAMALIL               (TIAPRIDE HYDROCHLORIDE) [Concomitant]
  5. BISOLVON                  (BROMOHEXINE HYDROCHLORIDE) [Concomitant]

REACTIONS (1)
  - HEPATIC FUNCTION ABNORMAL [None]
